FAERS Safety Report 16009502 (Version 1)
Quarter: 2019Q1

REPORT INFORMATION
  Report Type: Spontaneous
  Country: US (occurrence: US)
  Receive Date: 20190226
  Receipt Date: 20190226
  Transmission Date: 20190418
  Serious: Yes (Hospitalization, Other)
  Sender: FDA-Public Use
  Company Number: US-AUROBINDO-AUR-APL-2019-008344

PATIENT

DRUGS (3)
  1. METRONIDAZOLE. [Suspect]
     Active Substance: METRONIDAZOLE
     Indication: BACTERIAL VAGINOSIS
     Dosage: 8 HOUR, 48 TO 60 G OF METRONIDAZOLE OVER APPROXIMATELY 2 MONTHS; 4 TO 5 TIMES PER WEEK
     Route: 048
  2. IBUPROFEN. [Concomitant]
     Active Substance: IBUPROFEN
     Indication: MYALGIA
     Dosage: UNK
     Route: 065
  3. METRONIDAZOLE. [Suspect]
     Active Substance: METRONIDAZOLE
     Dosage: 500 MILLIGRAM
     Route: 042

REACTIONS (8)
  - Streptococcal bacteraemia [Unknown]
  - Aplastic anaemia [Recovering/Resolving]
  - Incorrect dose administered [Recovering/Resolving]
  - Pancytopenia [Recovering/Resolving]
  - Tonsillitis [Unknown]
  - Oropharyngeal pain [Unknown]
  - Dysphagia [Unknown]
  - Chills [Unknown]
